FAERS Safety Report 8601184-1 (Version None)
Quarter: 2012Q3

REPORT INFORMATION
  Report Type: 
  Country: None (occurrence: None)
  Receive Date: 20120817
  Receipt Date: 20120815
  Transmission Date: 20120928
  Serious: Yes (Death, Hospitalization)
  Sender: FDA-Public Use
  Company Number: PHHY2012BR049937

PATIENT
  Sex: Female

DRUGS (3)
  1. EXELON [Suspect]
     Indication: DEMENTIA ALZHEIMER'S TYPE
     Dosage: 4.6 MG, 9MG/5CM2, 1 PATCH DAILY
     Route: 062
     Dates: start: 20120301
  2. RISPERIDONE [Concomitant]
     Dosage: 1 DF, DAILY
     Route: 048
  3. SERTRALINE HYDROCHLORIDE [Concomitant]
     Dosage: 1 DF, DAILY
     Route: 048

REACTIONS (3)
  - URINARY TRACT INFECTION [None]
  - PNEUMONIA [None]
  - CARDIAC ARREST [None]
